FAERS Safety Report 7050212-6 (Version None)
Quarter: 2010Q4

REPORT INFORMATION
  Report Type: 
  Country: None (occurrence: None)
  Receive Date: 20101013
  Receipt Date: 20100928
  Transmission Date: 20110411
  Serious: No
  Sender: FDA-Public Use
  Company Number: 2010AP002094

PATIENT

DRUGS (2)
  1. SERTRALINE HYDROCHLORIDE [Suspect]
     Dosage: 50 MG;TID, TRPL
     Route: 064
  2. FERROUS FUMARATE [Concomitant]

REACTIONS (2)
  - CONGENITAL HYPOTHYROIDISM [None]
  - MATERNAL DRUGS AFFECTING FOETUS [None]
